FAERS Safety Report 24357704 (Version 12)
Quarter: 2024Q4

REPORT INFORMATION
  Report Type: Spontaneous
  Country: US (occurrence: US)
  Receive Date: 20240924
  Receipt Date: 20241219
  Transmission Date: 20250115
  Serious: No
  Sender: PFIZER
  Company Number: US-PFIZER INC-202400255630

PATIENT
  Age: 7 Year
  Sex: Female
  Weight: 13.605 kg

DRUGS (3)
  1. GENOTROPIN [Suspect]
     Active Substance: SOMATROPIN
     Indication: Noonan syndrome
     Dosage: 1 MG, DAILY
  2. GENOTROPIN [Suspect]
     Active Substance: SOMATROPIN
     Dosage: 1 MG, 6 DAYS PER WEEK, 1 DAY REST DAY
     Dates: start: 20240831
  3. GENOTROPIN [Suspect]
     Active Substance: SOMATROPIN
     Dosage: 1 MG, DAILY
     Route: 058

REACTIONS (9)
  - Contusion [Unknown]
  - Drug dose omission by device [Unknown]
  - Wrong technique in device usage process [Unknown]
  - Poor quality device used [Unknown]
  - Device issue [Unknown]
  - Device leakage [Unknown]
  - Device information output issue [Unknown]
  - Product container seal issue [Unknown]
  - Off label use [Unknown]

NARRATIVE: CASE EVENT DATE: 20240912
